FAERS Safety Report 7868805 (Version 3)
Quarter: 2013Q3

REPORT INFORMATION
  Report Type: Spontaneous
  Country: US (occurrence: US)
  Receive Date: 20110324
  Receipt Date: 20130722
  Transmission Date: 20140515
  Serious: No
  Sender: FDA-Public Use
  Company Number: US-BIOGENIDEC-2011BI010122

PATIENT
  Age: 25 Year
  Sex: Female

DRUGS (5)
  1. TYSABRI [Suspect]
     Indication: MULTIPLE SCLEROSIS
     Route: 042
     Dates: start: 20110311
  2. NUCYNTA [Concomitant]
     Indication: HEADACHE
  3. TOPAMAX [Concomitant]
     Indication: HEADACHE
  4. CELEXA [Concomitant]
     Indication: DEPRESSION
  5. LASIX [Concomitant]
     Indication: OEDEMA PERIPHERAL

REACTIONS (11)
  - Hypoaesthesia [Recovered/Resolved]
  - Dysuria [Recovered/Resolved]
  - Abdominal pain upper [Recovered/Resolved]
  - Bone pain [Recovered/Resolved]
  - Local swelling [Not Recovered/Not Resolved]
  - Vomiting [Recovered/Resolved]
  - Headache [Recovered/Resolved]
  - Pruritus generalised [Unknown]
  - Urinary tract infection [Recovered/Resolved]
  - Asthenia [Not Recovered/Not Resolved]
  - Dizziness [Recovered/Resolved]
